FAERS Safety Report 16938892 (Version 2)
Quarter: 2019Q4

REPORT INFORMATION
  Report Type: Report from Study
  Country: CA (occurrence: CA)
  Receive Date: 20191020
  Receipt Date: 20191125
  Transmission Date: 20200122
  Serious: Yes (Other)
  Sender: FDA-Public Use
  Company Number: PHHY2018CA019630

PATIENT
  Age: 47 Year
  Sex: Female

DRUGS (4)
  1. VITAMAN [Concomitant]
     Active Substance: MINERALS\VITAMINS
     Indication: PRODUCT USED FOR UNKNOWN INDICATION
     Route: 042
  2. SANDOSTATIN LAR DEPOT [Suspect]
     Active Substance: OCTREOTIDE ACETATE
     Dosage: 30 MG, Q3W
     Route: 030
  3. SANDOSTATIN LAR DEPOT [Suspect]
     Active Substance: OCTREOTIDE ACETATE
     Indication: CARCINOID TUMOUR
     Dosage: 30 MG, QMO
     Route: 030
     Dates: start: 20180131
  4. SANDOSTATIN [Suspect]
     Active Substance: OCTREOTIDE ACETATE
     Indication: CARCINOID TUMOUR
     Dosage: UNK UNK, TID (FOR 2 WEEKS)
     Route: 058
     Dates: start: 20180126

REACTIONS (13)
  - Carcinoid syndrome [Unknown]
  - Vertigo [Unknown]
  - Dizziness [Recovered/Resolved]
  - Blood pressure increased [Unknown]
  - Blood pressure decreased [Unknown]
  - Inappropriate schedule of product administration [Unknown]
  - Loss of consciousness [Unknown]
  - Carcinoid tumour [Unknown]
  - Ear discomfort [Unknown]
  - Dizziness [Unknown]
  - Presyncope [Unknown]
  - Malignant neoplasm progression [Unknown]
  - Anxiety [Unknown]

NARRATIVE: CASE EVENT DATE: 20180131
